FAERS Safety Report 26135295 (Version 1)
Quarter: 2025Q4

REPORT INFORMATION
  Report Type: Spontaneous
  Country: US (occurrence: None)
  Receive Date: 20251208
  Receipt Date: 20251208
  Transmission Date: 20260119
  Serious: Yes (Hospitalization)
  Sender: FDA-CTU
  Company Number: None

PATIENT
  Age: 63 Year
  Sex: Female

DRUGS (1)
  1. ZOLEDRONIC ACID [Suspect]
     Active Substance: ZOLEDRONIC ACID
     Indication: Senile osteoporosis
     Dosage: INFUSE 5 ML BY INTRAVENOUS ROUTE ONCE
     Route: 042

REACTIONS (1)
  - Osteomyelitis [None]

NARRATIVE: CASE EVENT DATE: 20251208
